FAERS Safety Report 23371866 (Version 2)
Quarter: 2024Q1

REPORT INFORMATION
  Report Type: Spontaneous
  Country: US (occurrence: US)
  Receive Date: 20240105
  Receipt Date: 20240111
  Transmission Date: 20240410
  Serious: Yes (Hospitalization, Disabling, Other)
  Sender: FDA-Public Use
  Company Number: US-PFIZER INC-2021830728

PATIENT
  Age: 80 Year
  Sex: Female

DRUGS (3)
  1. XELJANZ [Suspect]
     Active Substance: TOFACITINIB CITRATE
     Indication: Breast cancer female
     Dosage: 5 MG
     Route: 048
     Dates: start: 201901
  2. LETROZOLE [Concomitant]
     Active Substance: LETROZOLE
     Dosage: UNK
  3. SOLIFENACIN [Concomitant]
     Active Substance: SOLIFENACIN
     Dosage: UNK

REACTIONS (3)
  - Hip arthroplasty [Not Recovered/Not Resolved]
  - Fall [Not Recovered/Not Resolved]
  - Off label use [Unknown]

NARRATIVE: CASE EVENT DATE: 20231031
